FAERS Safety Report 7857961-8 (Version None)
Quarter: 2011Q4

REPORT INFORMATION
  Report Type: 
  Country: None (occurrence: None)
  Receive Date: 20111027
  Receipt Date: 20110225
  Transmission Date: 20120403
  Serious: Yes (Hospitalization, Other)
  Sender: FDA-Public Use
  Company Number: US-BAYER-2011-022083

PATIENT
  Sex: Female
  Weight: 74.83 kg

DRUGS (31)
  1. PRILOSEC [Concomitant]
     Dosage: DAILY DOSE 20 MG
     Route: 048
  2. BUMEX [Concomitant]
     Dosage: 0.5 MG, PRN
     Route: 048
  3. ATROVENT [Concomitant]
     Dosage: UNK UNK, PRN
  4. KETOTIFEN FUMARATE [Concomitant]
     Dosage: 0.025 %, UNK
     Route: 047
  5. ACETAMINOPHEN AND HYDROCODONE BITARTRATE [Concomitant]
     Dosage: UNK UNK, PRN
     Route: 048
  6. PROAIR HFA [Concomitant]
     Dosage: 2 PUFF(S), Q4HR
  7. NEXIUM [Concomitant]
     Dosage: DAILY DOSE 40 MG
     Route: 048
  8. PERCOCET [Concomitant]
     Dosage: UNK
     Route: 048
  9. YAZ [Suspect]
     Dosage: UNK, QD
     Route: 048
     Dates: start: 20071101, end: 20090101
  10. DILAUDID [Concomitant]
     Dosage: DAILY DOSE 1 MG
     Route: 042
  11. BENADRYL [Concomitant]
     Dosage: DAILY DOSE 12.5 MG
     Route: 042
  12. REGLAN [Concomitant]
     Dosage: 20 MG, UNK
     Route: 042
  13. LITHIUM CARBONATE [Concomitant]
     Dosage: 300 MG, BID
     Route: 048
  14. TRILEPTAL [Concomitant]
     Dosage: 600 MG, ONCE
     Route: 048
  15. NAPROXEN [Concomitant]
     Dosage: 375 MG, UNK
     Route: 048
  16. ALLEGRA [Concomitant]
     Route: 048
  17. FIORICET [Concomitant]
     Dosage: UNK UNK, PRN
     Route: 048
  18. SEROQUEL [Concomitant]
     Dosage: 400 MG, ONCE
     Route: 048
  19. ZOCOR [Concomitant]
     Dosage: 40 MG, ONCE
     Route: 048
  20. METRONIDAZOLE [Concomitant]
     Dosage: 500 MG, UNK
     Route: 048
  21. IMITREX [Concomitant]
     Dosage: 100 MG, UNK
     Route: 048
  22. NICOTINE [Concomitant]
     Dosage: 14 MG, UNK
     Route: 061
  23. RISPERDAL [Concomitant]
     Dosage: 1 MG, BID
     Route: 048
  24. ALBUTEROL [Concomitant]
     Dosage: UNK UNK, PRN
  25. PREDNISONE [Concomitant]
     Dosage: 40 MG, UNK
     Route: 048
  26. TRIAMCINOLONE [Concomitant]
     Dosage: UNK
     Route: 061
  27. YASMIN [Suspect]
     Dosage: UNK, QD
     Route: 048
     Dates: start: 20071101, end: 20090101
  28. AMOXICILLIN [Concomitant]
     Dosage: 500 MG, QID
     Route: 048
  29. TRIAMCINOLONE [Concomitant]
     Dosage: 0.5 %, BID
     Route: 061
  30. ACETAMINOPHEN W/ CODEINE [Concomitant]
     Dosage: UNK UNK, PRN
     Route: 048
  31. ZOFRAN [Concomitant]
     Dosage: 4 MG, UNK
     Route: 042

REACTIONS (8)
  - DYSPEPSIA [None]
  - CHEST PAIN [None]
  - PALPITATIONS [None]
  - ABDOMINAL PAIN UPPER [None]
  - HEPATIC ENZYME INCREASED [None]
  - CHOLECYSTITIS [None]
  - CHOLELITHIASIS [None]
  - BILIARY COLIC [None]
